FAERS Safety Report 6381357-1 (Version None)
Quarter: 2009Q3

REPORT INFORMATION
  Report Type: 
  Country: None (occurrence: None)
  Receive Date: 20090923
  Receipt Date: 20090908
  Transmission Date: 20100115
  Serious: Yes (Other)
  Sender: FDA-Public Use
  Company Number: DSJ-2009-11733

PATIENT
  Age: 67 Year
  Sex: Female

DRUGS (6)
  1. OLMETEC (OLMESARTAN MEDOXOMIL) [Suspect]
     Indication: HYPERTENSION
     Dosage: 20 MG, PER ORAL
     Route: 048
     Dates: end: 20090908
  2. ALODIPINE (AMLODIPINE) [Concomitant]
  3. MUCOSTA (REBAMIPIDE) [Concomitant]
  4. METHYCOBAL (MECOBALAMIN) [Concomitant]
  5. JUVELA         (TOCOPHERYL NICOTINATE) [Concomitant]
  6. CINAL (ASCORBIC ACID, CALCIUM PANTHOTENATE) [Concomitant]

REACTIONS (2)
  - DYSPNOEA [None]
  - ELECTROCARDIOGRAM QT PROLONGED [None]
